FAERS Safety Report 4366769-X (Version None)
Quarter: 2004Q2

REPORT INFORMATION
  Report Type: 
  Country: None (occurrence: None)
  Receive Date: 20040528
  Receipt Date: 20040401
  Transmission Date: 20050107
  Serious: Yes (Other)
  Sender: FDA-Public Use
  Company Number: PHNR2004AU00860

PATIENT
  Sex: Female

DRUGS (1)
  1. SYNTOCINON [Suspect]
     Dosage: UNSPECIFIED
     Dates: start: 20031101, end: 20031101

REACTIONS (2)
  - CAESAREAN SECTION [None]
  - DRUG EXPOSURE DURING PREGNANCY [None]
